FAERS Safety Report 4514973-X (Version None)
Quarter: 2004Q4

REPORT INFORMATION
  Report Type: 
  Country: None (occurrence: None)
  Receive Date: 20041201
  Receipt Date: 20040825
  Transmission Date: 20050328
  Serious: Yes (Death)
  Sender: FDA-Public Use
  Company Number: DK-SOLVAY-00304003569

PATIENT
  Sex: Female
  Weight: 44.4 kg

DRUGS (3)
  1. ELTROXIN [Concomitant]
     Indication: HYPOMETABOLISM
     Dosage: DAILY DOSE: 50 MILLIGRAM(S)
     Route: 048
  2. CREON [Suspect]
     Indication: ILL-DEFINED DISORDER
     Dosage: DAILY DOSE: 6 DOSAGE FORM
     Route: 048
     Dates: start: 20040224, end: 20040726
  3. PAMOL [Concomitant]
     Indication: PAIN
     Dosage: DAILY DOSE:  UNKNOWN
     Route: 048
     Dates: start: 20040216

REACTIONS (2)
  - PERITONEAL CARCINOMA [None]
  - RECURRENT CANCER [None]
